FAERS Safety Report 9142926 (Version 2)
Quarter: 2013Q4

REPORT INFORMATION
  Report Type: Spontaneous
  Country: FR (occurrence: FR)
  Receive Date: 20130306
  Receipt Date: 20131210
  Transmission Date: 20140711
  Serious: Yes (Hospitalization, Other)
  Sender: FDA-Public Use
  Company Number: FR-PFIZER INC-2013076344

PATIENT
  Age: 78 Year
  Sex: Female

DRUGS (10)
  1. CORDARONE [Suspect]
     Indication: ATRIAL FIBRILLATION
     Dosage: 200 MG DAILY 5 TIMES A WEEK
     Route: 048
     Dates: end: 20130207
  2. OXYCONTIN [Concomitant]
     Dosage: UNK
     Dates: end: 20130129
  3. PREVISCAN [Concomitant]
     Dosage: UNK
  4. LASILIX [Concomitant]
     Dosage: UNK
  5. AMLOR [Concomitant]
     Dosage: UNK
     Dates: end: 20130129
  6. SPIRONOLACTONE [Concomitant]
     Dosage: UNK
  7. MIFLASONE [Concomitant]
     Dosage: UNK
     Dates: end: 20130129
  8. SEROPLEX [Concomitant]
     Dosage: UNK
  9. BUSPIRONE [Concomitant]
     Dosage: UNK
  10. PARACETAMOL [Concomitant]
     Dosage: UNK

REACTIONS (3)
  - Interstitial lung disease [Recovered/Resolved]
  - Respiratory distress [Recovered/Resolved]
  - Metapneumovirus infection [Unknown]
